FAERS Safety Report 14478523 (Version 1)
Quarter: 2018Q1

REPORT INFORMATION
  Report Type: Report from Study
  Country: IN (occurrence: IN)
  Receive Date: 20180202
  Receipt Date: 20180202
  Transmission Date: 20180509
  Serious: Yes (Other)
  Sender: FDA-Public Use
  Company Number: IN-ACCORD-063093

PATIENT
  Age: 52 Year
  Sex: Female

DRUGS (4)
  1. FLUOROURACIL. [Suspect]
     Active Substance: FLUOROURACIL
     Indication: COLORECTAL CANCER METASTATIC
     Dosage: STANDARD DOSES EVERY 2 WEEKS
  2. IRINOTECAN [Suspect]
     Active Substance: IRINOTECAN
     Indication: COLORECTAL CANCER METASTATIC
     Dosage: STANDARD DOSES EVERY 2 WEEKS
  3. ARSENIC [Suspect]
     Active Substance: ARSENIC
     Indication: COLORECTAL CANCER METASTATIC
     Dosage: ON DAYS 1 TO 2
  4. FOLINIC ACID [Suspect]
     Active Substance: LEUCOVORIN
     Indication: COLORECTAL CANCER METASTATIC
     Dosage: STANDARD DOSES EVERY 2 WEEKS

REACTIONS (1)
  - Fatigue [Unknown]
